FAERS Safety Report 16542902 (Version 1)
Quarter: 2019Q3

REPORT INFORMATION
  Report Type: Spontaneous
  Country: DE (occurrence: DE)
  Receive Date: 20190709
  Receipt Date: 20190709
  Transmission Date: 20191004
  Serious: Yes (Hospitalization, Other)
  Sender: FDA-Public Use
  Company Number: DE-ACCORD-137459

PATIENT
  Age: 81 Year
  Sex: Female

DRUGS (11)
  1. EBRANTIL [Concomitant]
     Active Substance: URAPIDIL
     Dosage: 60 MG, 1-1-1-0
  2. METAMIZOLE SODIUM [Concomitant]
     Active Substance: METAMIZOLE SODIUM
     Dosage: 20-20-20-20, TROPFEN
  3. METOPROLOL. [Concomitant]
     Active Substance: METOPROLOL
     Dosage: 100 MG, 0-0-1-0
  4. LETROZOLE. [Suspect]
     Active Substance: LETROZOLE
     Indication: PRODUCT USED FOR UNKNOWN INDICATION
     Dosage: 2.5 MG, 1-0-0-0
  5. FLECAINIDE [Suspect]
     Active Substance: FLECAINIDE
     Indication: PRODUCT USED FOR UNKNOWN INDICATION
     Dosage: 100 MG, 1-0-0-0
  6. METOPROLOL COMP [Concomitant]
     Dosage: 100/12.5 MG, 0.5-0-0-0
  7. PROPAFENONE. [Suspect]
     Active Substance: PROPAFENONE
     Indication: PRODUCT USED FOR UNKNOWN INDICATION
     Dosage: 150 MG, 0-0-1-0
  8. FUROSEMIDE. [Concomitant]
     Active Substance: FUROSEMIDE
     Dosage: 40 MG, 1-1-0-0
  9. LISINOPRIL. [Concomitant]
     Active Substance: LISINOPRIL
     Dosage: 20 MG, 1-0-1-0
  10. CLONIDINE. [Concomitant]
     Active Substance: CLONIDINE
     Dosage: 150 MG, 1-0-1-1
  11. XARELTO [Concomitant]
     Active Substance: RIVAROXABAN
     Dosage: 20 MG, 1-0-0-0

REACTIONS (2)
  - Arrhythmia [Unknown]
  - Dyspnoea [Unknown]
